FAERS Safety Report 9454297 (Version 1)
Quarter: 2013Q3

REPORT INFORMATION
  Report Type: Spontaneous
  Country: US (occurrence: None)
  Receive Date: 20130809
  Receipt Date: 20130809
  Transmission Date: 20140515
  Serious: Yes (Hospitalization)
  Sender: FDA-Public Use
  Company Number: None

PATIENT
  Age: 36 Year
  Sex: Female
  Weight: 58 kg

DRUGS (4)
  1. CITALOPRAM 20MG DR REDDYS [Suspect]
     Indication: DEPRESSION
     Dosage: 20MG QD ORAL
     Route: 048
  2. ESTROPIPATE [Concomitant]
  3. VITAMIN D [Concomitant]
  4. VITAMIN D [Concomitant]

REACTIONS (5)
  - Confusional state [None]
  - Muscle rigidity [None]
  - Bruxism [None]
  - Jaw disorder [None]
  - Serotonin syndrome [None]
